FAERS Safety Report 5269411-9 (Version None)
Quarter: 2007Q1

REPORT INFORMATION
  Report Type: 
  Country: None (occurrence: None)
  Receive Date: 20070316
  Receipt Date: 20070316
  Transmission Date: 20070707
  Serious: Yes (Other)
  Sender: FDA-Public Use
  Company Number: None

PATIENT
  Age: 72 Year
  Sex: Male
  Weight: 106.5953 kg

DRUGS (1)
  1. LEVOTHYROID MANUFACTURED BY LLOYDS PHARMACEUTICAL DISTRIB BY FOREST LA [Suspect]
     Indication: HYPOTHYROIDISM

REACTIONS (4)
  - DRUG EFFECT DECREASED [None]
  - HYPOTHYROIDISM [None]
  - PHARMACEUTICAL PRODUCT COMPLAINT [None]
  - THERAPEUTIC RESPONSE UNEXPECTED WITH DRUG SUBSTITUTION [None]
